FAERS Safety Report 23309899 (Version 1)
Quarter: 2023Q4

REPORT INFORMATION
  Report Type: Spontaneous
  Country: US (occurrence: US)
  Receive Date: 20231218
  Receipt Date: 20231218
  Transmission Date: 20240110
  Serious: No
  Sender: FDA-Public Use
  Company Number: US-PFIZER INC-202300429434

PATIENT
  Age: 69 Year
  Sex: Female
  Weight: 57.61 kg

DRUGS (1)
  1. LEVOXYL [Suspect]
     Active Substance: LEVOTHYROXINE SODIUM
     Indication: Hypothyroidism
     Dosage: UNK

REACTIONS (18)
  - Nausea [Unknown]
  - Dizziness [Unknown]
  - Neck pain [Unknown]
  - Arthralgia [Unknown]
  - Skin burning sensation [Unknown]
  - Skin irritation [Unknown]
  - Periorbital swelling [Unknown]
  - Joint swelling [Unknown]
  - Dyspnoea [Unknown]
  - Chest discomfort [Unknown]
  - Urticaria [Unknown]
  - Illness [Unknown]
  - Feeding disorder [Unknown]
  - Musculoskeletal stiffness [Unknown]
  - Limb discomfort [Unknown]
  - Erythema [Unknown]
  - Abdominal pain [Unknown]
  - Product odour abnormal [Unknown]
